FAERS Safety Report 18105346 (Version 2)
Quarter: 2022Q1

REPORT INFORMATION
  Report Type: Spontaneous
  Country: CA (occurrence: CA)
  Receive Date: 20200804
  Receipt Date: 20220307
  Transmission Date: 20220423
  Serious: Yes (Other)
  Sender: FDA-Public Use
  Company Number: CA-SA-2020SA197730

PATIENT
  Age: 54 Year
  Sex: Male
  Weight: 72 kg

DRUGS (71)
  1. RIFAMPIN [Suspect]
     Active Substance: RIFAMPIN
     Indication: Endocarditis
     Dosage: 600 MG, QD
     Route: 048
     Dates: start: 20200126, end: 20200129
  2. MEROPENEM [Suspect]
     Active Substance: MEROPENEM
     Indication: Endocarditis
     Dosage: 1 G, Q12H
     Route: 042
     Dates: start: 20200126, end: 20200130
  3. ACETAMINOPHEN [Concomitant]
     Active Substance: ACETAMINOPHEN
  4. ACETAMINOPHEN [Concomitant]
     Active Substance: ACETAMINOPHEN
  5. ACYCLOVIR [Concomitant]
     Active Substance: ACYCLOVIR
     Dosage: UNK
  6. ACYCLOVIR [Concomitant]
     Active Substance: ACYCLOVIR
  7. AMIODARONE [Concomitant]
     Active Substance: AMIODARONE
  8. AMIODARONE [Concomitant]
     Active Substance: AMIODARONE
  9. AMPICILLIN [Concomitant]
     Active Substance: AMPICILLIN
  10. CEFTRIAXONE SODIUM [Concomitant]
     Active Substance: CEFTRIAXONE SODIUM
     Route: 030
  11. CHLORHEXIDINE [Concomitant]
     Active Substance: CHLORHEXIDINE
  12. CHLORHEXIDINE [Concomitant]
     Active Substance: CHLORHEXIDINE
  13. CHOLESTYRAMINE [Concomitant]
     Active Substance: CHOLESTYRAMINE
  14. CHOLESTYRAMINE [Concomitant]
     Active Substance: CHOLESTYRAMINE
  15. CIALIS [Concomitant]
     Active Substance: TADALAFIL
  16. CIALIS [Concomitant]
     Active Substance: TADALAFIL
  17. CLONIDINE [Concomitant]
     Active Substance: CLONIDINE
  18. CLONIDINE [Concomitant]
     Active Substance: CLONIDINE
  19. CLOTRIMAZOLE [Concomitant]
     Active Substance: CLOTRIMAZOLE
  20. CLOTRIMAZOLE [Concomitant]
     Active Substance: CLOTRIMAZOLE
  21. CLOXACILLIN [Concomitant]
     Active Substance: CLOXACILLIN
     Route: 042
  22. CLOXACILLIN [Concomitant]
     Active Substance: CLOXACILLIN
  23. COUMADIN [Concomitant]
     Active Substance: WARFARIN SODIUM
     Dosage: UNK
  24. COUMADIN [Concomitant]
     Active Substance: WARFARIN SODIUM
  25. DEXTROSE [Concomitant]
     Active Substance: DEXTROSE
     Route: 042
  26. DYMISTA [Concomitant]
     Active Substance: AZELASTINE HYDROCHLORIDE\FLUTICASONE PROPIONATE
     Dosage: UNK
  27. DYMISTA [Concomitant]
     Active Substance: AZELASTINE HYDROCHLORIDE\FLUTICASONE PROPIONATE
  28. ACETAMINOPHEN [Concomitant]
     Active Substance: ACETAMINOPHEN
  29. FUROSEMIDE [Concomitant]
     Active Substance: FUROSEMIDE
     Dosage: UNK
  30. FUROSEMIDE [Concomitant]
     Active Substance: FUROSEMIDE
  31. GENTAMICIN [Concomitant]
     Active Substance: GENTAMICIN
  32. GENTAMICIN [Concomitant]
     Active Substance: GENTAMICIN
  33. HEPARIN CALCIUM [Concomitant]
     Active Substance: HEPARIN CALCIUM
  34. HUMULIN N [Concomitant]
     Active Substance: INSULIN HUMAN
     Route: 058
  35. HUMULIN N [Concomitant]
     Active Substance: INSULIN HUMAN
  36. HUMULIN R [Concomitant]
     Active Substance: INSULIN HUMAN
  37. HYDROMORPHONE [Concomitant]
     Active Substance: HYDROMORPHONE
  38. HYDROMORPHONE [Concomitant]
     Active Substance: HYDROMORPHONE
  39. LANSOPRAZOLE [Concomitant]
     Active Substance: LANSOPRAZOLE
  40. LANSOPRAZOLE [Concomitant]
     Active Substance: LANSOPRAZOLE
  41. LEVAQUIN [Concomitant]
     Active Substance: LEVOFLOXACIN
  42. LEVAQUIN [Concomitant]
     Active Substance: LEVOFLOXACIN
  43. METOPROLOL [Concomitant]
     Active Substance: METOPROLOL
  44. METOPROLOL [Concomitant]
     Active Substance: METOPROLOL
  45. MILRINONE [Concomitant]
     Active Substance: MILRINONE
     Dosage: LIQUID
     Route: 042
  46. MILRINONE [Concomitant]
     Active Substance: MILRINONE
  47. NOREPINEPHRINE [Concomitant]
     Active Substance: NOREPINEPHRINE
     Dosage: LIQUID
     Route: 042
  48. NOREPINEPHRINE [Concomitant]
     Active Substance: NOREPINEPHRINE
  49. PHENYLEPHRINE HCL [Concomitant]
     Active Substance: PHENYLEPHRINE HYDROCHLORIDE
  50. PIPERACILLIN AND TAZOBACTAM [Concomitant]
     Active Substance: PIPERACILLIN SODIUM\TAZOBACTAM SODIUM
     Route: 042
  51. POTASSIUM [Concomitant]
     Active Substance: POTASSIUM
     Route: 042
  52. PROPOFOL [Concomitant]
     Active Substance: PROPOFOL
  53. PROPOFOL [Concomitant]
     Active Substance: PROPOFOL
  54. PIPERACILLIN SODIUM\TAZOBACTAM SODIUM [Concomitant]
     Active Substance: PIPERACILLIN SODIUM\TAZOBACTAM SODIUM
     Route: 042
  55. PIPERACILLIN SODIUM\TAZOBACTAM SODIUM [Concomitant]
     Active Substance: PIPERACILLIN SODIUM\TAZOBACTAM SODIUM
  56. VANCOMYCIN [Concomitant]
     Active Substance: VANCOMYCIN
  57. VANCOMYCIN [Concomitant]
     Active Substance: VANCOMYCIN
  58. VASOPRESSIN [Concomitant]
     Active Substance: VASOPRESSIN
  59. VASOPRESSIN [Concomitant]
     Active Substance: VASOPRESSIN
  60. DEXTROSE [Concomitant]
     Active Substance: DEXTROSE
  61. ISOPHANE INSULIN [Concomitant]
     Active Substance: INSULIN NOS
  62. LEVOFLOXACIN [Concomitant]
     Active Substance: LEVOFLOXACIN
  63. TADALAFIL [Concomitant]
     Active Substance: TADALAFIL
  64. WARFARIN [Concomitant]
     Active Substance: WARFARIN
  65. AZELASTINE HYDROCHLORIDE\FLUTICASONE PROPIONATE [Concomitant]
     Active Substance: AZELASTINE HYDROCHLORIDE\FLUTICASONE PROPIONATE
  66. CEFTRIAXONE [Concomitant]
     Active Substance: CEFTRIAXONE
  67. HEPARIN [Concomitant]
     Active Substance: HEPARIN SODIUM
  68. PIPERACILLIN SODIUM\TAZOBACTAM SODIUM [Concomitant]
     Active Substance: PIPERACILLIN SODIUM\TAZOBACTAM SODIUM
  69. HUMULIN R [Concomitant]
     Active Substance: INSULIN HUMAN
  70. PHENYLEPHRINE [Concomitant]
     Active Substance: PHENYLEPHRINE HYDROCHLORIDE
  71. POTASSIUM CHLORIDE [Concomitant]
     Active Substance: POTASSIUM CHLORIDE

REACTIONS (2)
  - Neutropenia [Recovered/Resolved]
  - Hepatic enzyme increased [Recovered/Resolved]

NARRATIVE: CASE EVENT DATE: 20200129
